FAERS Safety Report 5498054-7 (Version None)
Quarter: 2007Q4

REPORT INFORMATION
  Report Type: 
  Country: None (occurrence: None)
  Receive Date: 20071018
  Receipt Date: 20070606
  Transmission Date: 20080405
  Serious: Yes (Other)
  Sender: FDA-Public Use
  Company Number: 2005151284

PATIENT
  Age: 22 Year
  Sex: Male

DRUGS (10)
  1. NEURONTIN [Suspect]
     Indication: ANXIETY
     Dates: start: 19991013
  2. NEURONTIN [Suspect]
     Indication: BIPOLAR DISORDER
     Dates: start: 19991013
  3. NEURONTIN [Suspect]
     Indication: DEPRESSION
     Dates: start: 19991013
  4. EFFEXOR [Concomitant]
  5. TRAZODONE HCL [Concomitant]
  6. ZOLOFT [Concomitant]
  7. KLONOPIN [Concomitant]
  8. REMERON [Concomitant]
  9. PAXIL [Concomitant]
  10. WELLBUTRIN [Concomitant]

REACTIONS (2)
  - DRUG INEFFECTIVE [None]
  - SUICIDE ATTEMPT [None]
